FAERS Safety Report 4639369-1 (Version None)
Quarter: 2005Q2

REPORT INFORMATION
  Report Type: 
  Country: None (occurrence: None)
  Receive Date: 20050418
  Receipt Date: 20050405
  Transmission Date: 20051028
  Serious: Yes (Death)
  Sender: FDA-Public Use
  Company Number: S05-USA-01745-01

PATIENT
  Age: 20 Year
  Sex: Male

DRUGS (2)
  1. CELEXA [Suspect]
     Dates: end: 20020101
  2. OXYCONTIN [Suspect]
     Dates: end: 20020101

REACTIONS (2)
  - DRUG LEVEL INCREASED [None]
  - OVERDOSE [None]
